FAERS Safety Report 9630497 (Version 3)
Quarter: 2013Q4

REPORT INFORMATION
  Report Type: Report from Study
  Country: CA (occurrence: CA)
  Receive Date: 20131018
  Receipt Date: 20131101
  Transmission Date: 20140711
  Serious: Yes (Hospitalization)
  Sender: FDA-Public Use
  Company Number: CA-ROCHE-1139277

PATIENT
  Age: 70 Year
  Sex: Female

DRUGS (12)
  1. RITUXAN [Suspect]
     Indication: RHEUMATOID ARTHRITIS
     Route: 042
     Dates: start: 20110912
  2. PLAQUENIL [Concomitant]
  3. ESTRACE [Concomitant]
  4. PREMARIN [Concomitant]
  5. PREDNISONE [Concomitant]
  6. BROMAZEPAM [Concomitant]
  7. DIPHENHYDRAMINE HCL [Concomitant]
     Route: 048
     Dates: start: 20120307, end: 20120926
  8. ACETAMINOPHEN [Concomitant]
     Route: 048
     Dates: start: 20120307
  9. ACETAMINOPHEN [Concomitant]
     Route: 048
     Dates: start: 20120321
  10. METHYLPREDNISOLONE [Concomitant]
     Route: 042
     Dates: start: 20120307, end: 20120926
  11. PROVERA [Concomitant]
  12. METHOTREXATE [Concomitant]

REACTIONS (4)
  - Bronchospasm [Recovered/Resolved]
  - Rash [Recovered/Resolved]
  - Pruritus [Not Recovered/Not Resolved]
  - Blood pressure increased [Recovered/Resolved]
